FAERS Safety Report 5329424-5 (Version None)
Quarter: 2007Q2

REPORT INFORMATION
  Report Type: 
  Country: None (occurrence: None)
  Receive Date: 20070220
  Receipt Date: 20060525
  Transmission Date: 20071010
  Serious: Yes (Disabling)
  Sender: FDA-Public Use
  Company Number: 84728

PATIENT
  Age: 53 Year
  Sex: Male

DRUGS (1)
  1. PERIDEX [Suspect]
     Indication: GINGIVITIS
     Dosage: ORAL RINSE ONCE DAILY
     Route: 048
     Dates: start: 20030401, end: 20060301

REACTIONS (1)
  - AGEUSIA [None]
